FAERS Safety Report 6035177-8 (Version None)
Quarter: 2009Q1

REPORT INFORMATION
  Report Type: 
  Country: None (occurrence: None)
  Receive Date: 20090109
  Receipt Date: 20081224
  Transmission Date: 20090719
  Serious: No
  Sender: FDA-Public Use
  Company Number: 2009-189164-NL

PATIENT
  Sex: Male

DRUGS (3)
  1. MIRTAZAPINE [Suspect]
     Dosage: DF
  2. NALTREXONE HYDROCHLORIDE [Suspect]
     Dosage: DF
  3. METHADONE HCL [Suspect]
     Dosage: DF

REACTIONS (3)
  - DIARRHOEA [None]
  - EPILEPSY [None]
  - VOMITING PROJECTILE [None]
